FAERS Safety Report 7674891-5 (Version None)
Quarter: 2011Q3

REPORT INFORMATION
  Report Type: 
  Country: None (occurrence: None)
  Receive Date: 20110810
  Receipt Date: 20110728
  Transmission Date: 20111222
  Serious: Yes (Death, Hospitalization)
  Sender: FDA-Public Use
  Company Number: FR-ELI_LILLY_AND_COMPANY-FR201012006709

PATIENT
  Sex: Male

DRUGS (2)
  1. ZYPREXA [Suspect]
     Dosage: 5 MG, DAILY (1/D)
     Route: 048
     Dates: start: 20060101
  2. DEPAKOTE [Concomitant]
     Dosage: 250 MG, 2/D
     Route: 048
     Dates: start: 20060101

REACTIONS (5)
  - TOOTH INFECTION [None]
  - DIVERTICULITIS [None]
  - CEREBRAL VENOUS THROMBOSIS [None]
  - SUBDURAL HAEMATOMA [None]
  - BLOOD PRESSURE INCREASED [None]
